FAERS Safety Report 7640382-0 (Version None)
Quarter: 2011Q3

REPORT INFORMATION
  Report Type: 
  Country: None (occurrence: None)
  Receive Date: 20110728
  Receipt Date: 20110718
  Transmission Date: 20111222
  Serious: Yes (Other)
  Sender: FDA-Public Use
  Company Number: US-BIOGENIDEC-2009BI038213

PATIENT
  Sex: Female

DRUGS (2)
  1. AVONEX [Suspect]
     Indication: MULTIPLE SCLEROSIS
     Route: 030
     Dates: start: 20090711
  2. UNKNOWN PRESCRIPTION MEDICATION [Concomitant]
     Indication: CONVULSION
     Dates: start: 20070101

REACTIONS (2)
  - CONVULSION [None]
  - EPILEPSY [None]
